FAERS Safety Report 17528280 (Version 3)
Quarter: 2020Q3

REPORT INFORMATION
  Report Type: Spontaneous
  Country: CN (occurrence: CN)
  Receive Date: 20200311
  Receipt Date: 20200813
  Transmission Date: 20201102
  Serious: Yes (Hospitalization)
  Sender: FDA-Public Use
  Company Number: CN-CELGENEUS-CHN-20200302094

PATIENT
  Age: 72 Year
  Sex: Male
  Weight: 56 kg

DRUGS (16)
  1. CARBOPLATIN. [Suspect]
     Active Substance: CARBOPLATIN
     Indication: SQUAMOUS CELL CARCINOMA OF LUNG
     Dosage: 447 MILLIGRAM
     Route: 041
     Dates: start: 20191202, end: 20200204
  2. CARBOPLATIN. [Suspect]
     Active Substance: CARBOPLATIN
     Dosage: 443 MILLIGRAM
     Route: 041
     Dates: start: 20200204, end: 20200204
  3. ABRAXANE [Suspect]
     Active Substance: PACLITAXEL
     Dosage: 150 MILLIGRAM
     Route: 041
     Dates: start: 20200114, end: 20200121
  4. ABRAXANE [Suspect]
     Active Substance: PACLITAXEL
     Dosage: 152 MILLIGRAM
     Route: 041
     Dates: start: 20200204, end: 20200204
  5. SERPLULIMAB. [Concomitant]
     Active Substance: SERPLULIMAB
     Dosage: 230 MILLIGRAM
     Route: 041
     Dates: start: 20191224
  6. DEXAMETHASONE SODIUM PHOSPHATE. [Concomitant]
     Active Substance: DEXAMETHASONE SODIUM PHOSPHATE
     Indication: ANTIALLERGIC THERAPY
     Dosage: 10 MILLIGRAM
     Route: 041
     Dates: start: 20200217, end: 20200217
  7. CARBOPLATIN. [Suspect]
     Active Substance: CARBOPLATIN
     Dosage: 438 MILLIGRAM
     Route: 041
     Dates: start: 20191224, end: 20191224
  8. CARBOPLATIN. [Suspect]
     Active Substance: CARBOPLATIN
     Dosage: 426 MILLIGRAM
     Route: 041
     Dates: start: 20200114, end: 20200114
  9. GADOPENTETIC ACID DIMEGLUMINE SLAT [Concomitant]
     Indication: IMAGING PROCEDURE
     Dosage: 15 MILLILITER
     Route: 041
     Dates: start: 20200218, end: 20200218
  10. HUMAN GRANULOCYTE STIMULATING FACTOR [Concomitant]
     Indication: WHITE BLOOD CELL COUNT
     Dosage: 300 MICROGRAM
     Route: 058
     Dates: start: 20200224, end: 20200226
  11. ABRAXANE [Suspect]
     Active Substance: PACLITAXEL
     Dosage: 148 MILLIGRAM
     Route: 041
     Dates: start: 20191216, end: 20200107
  12. SERPLULIMAB. [Concomitant]
     Active Substance: SERPLULIMAB
     Indication: SQUAMOUS CELL CARCINOMA OF LUNG
     Dosage: 225 MILLIGRAM
     Route: 041
     Dates: start: 20191202, end: 20200204
  13. ABRAXANE [Suspect]
     Active Substance: PACLITAXEL
     Dosage: 154 MILLIGRAM
     Route: 041
     Dates: start: 20200211, end: 20200211
  14. ABRAXANE [Suspect]
     Active Substance: PACLITAXEL
     Dosage: 153 MILLIGRAM
     Route: 041
     Dates: start: 20200218, end: 20200218
  15. ABRAXANE [Suspect]
     Active Substance: PACLITAXEL
     Indication: NON-SMALL CELL LUNG CANCER
     Dosage: 147 MILLIGRAM
     Route: 041
     Dates: start: 20191202, end: 20200218
  16. SERPLULIMAB. [Concomitant]
     Active Substance: SERPLULIMAB
     Dosage: DOSE NOT PROVIDED
     Route: 041
     Dates: start: 20200227

REACTIONS (1)
  - Myelosuppression [Recovered/Resolved]

NARRATIVE: CASE EVENT DATE: 20200224
